FAERS Safety Report 11236190 (Version 2)
Quarter: 2015Q3

REPORT INFORMATION
  Report Type: Report from Study
  Country: US (occurrence: US)
  Receive Date: 20150702
  Receipt Date: 20150918
  Transmission Date: 20151125
  Serious: Yes (Hospitalization)
  Sender: FDA-Public Use
  Company Number: US-GILEAD-2015-0161237

PATIENT
  Age: 43 Year
  Sex: Male

DRUGS (3)
  1. AMBRISENTAN [Suspect]
     Active Substance: AMBRISENTAN
     Indication: PULMONARY HYPERTENSION
     Dosage: 10 MG, QD
     Route: 065
     Dates: start: 20141016
  2. AMBRISENTAN [Suspect]
     Active Substance: AMBRISENTAN
     Indication: HAEMOLYTIC ANAEMIA
  3. AMBRISENTAN [Suspect]
     Active Substance: AMBRISENTAN
     Indication: THALASSAEMIA

REACTIONS (1)
  - Pharyngitis streptococcal [Recovered/Resolved]
